FAERS Safety Report 9324982 (Version 1)
Quarter: 2013Q2

REPORT INFORMATION
  Report Type: Spontaneous
  Country: US (occurrence: US)
  Receive Date: 20130603
  Receipt Date: 20130603
  Transmission Date: 20140414
  Serious: No
  Sender: FDA-Public Use
  Company Number: US-ASTRAZENECA-2013SE35547

PATIENT
  Age: 29 Year
  Sex: Female
  Weight: 52.6 kg

DRUGS (2)
  1. NEXIUM [Suspect]
     Indication: GASTROOESOPHAGEAL REFLUX DISEASE
     Dosage: UNKNOWN DOSE DAILY
     Route: 048
     Dates: start: 201305, end: 20130515
  2. CENTRUM VITAMINS [Concomitant]
     Indication: PROPHYLAXIS
     Dosage: DAILY
     Route: 048
     Dates: start: 201303

REACTIONS (2)
  - Headache [Unknown]
  - Off label use [Unknown]
